FAERS Safety Report 21055629 (Version 1)
Quarter: 2022Q3

REPORT INFORMATION
  Report Type: Spontaneous
  Country: US (occurrence: US)
  Receive Date: 20220708
  Receipt Date: 20220708
  Transmission Date: 20221026
  Serious: No
  Sender: FDA-Public Use
  Company Number: US-NOVARTISTESTPH-NVSC2022US155261

PATIENT

DRUGS (1)
  1. VOLTAREN [Suspect]
     Active Substance: DICLOFENAC SODIUM
     Indication: Product used for unknown indication
     Dosage: 24D (EVERY HOUR)
     Route: 065
     Dates: start: 20210801

REACTIONS (3)
  - Therapeutic product effect variable [Unknown]
  - Product use issue [Unknown]
  - Inappropriate schedule of product administration [Unknown]
